FAERS Safety Report 14794284 (Version 1)
Quarter: 2018Q2

REPORT INFORMATION
  Report Type: Spontaneous
  Country: IT (occurrence: IT)
  Receive Date: 20180423
  Receipt Date: 20180423
  Transmission Date: 20180711
  Serious: Yes (Hospitalization)
  Sender: FDA-Public Use
  Company Number: IT-TEVA-2018-IT-883750

PATIENT
  Age: 85 Year
  Sex: Male

DRUGS (5)
  1. DILZENE 60 MG COMPRESSE A RILASCIO MODIFICATO [Concomitant]
     Route: 048
  2. LASIX [Concomitant]
     Active Substance: FUROSEMIDE
  3. ELIQUIS [Concomitant]
     Active Substance: APIXABAN
  4. LEVOFLOXACIN. [Suspect]
     Active Substance: LEVOFLOXACIN
     Indication: BRONCHITIS
     Route: 048
  5. LANOXIN [Concomitant]
     Active Substance: DIGOXIN

REACTIONS (2)
  - Tendon pain [Recovering/Resolving]
  - Tendon injury [Recovering/Resolving]
